FAERS Safety Report 10129676 (Version 1)
Quarter: 2014Q2

REPORT INFORMATION
  Report Type: Spontaneous
  Country: US (occurrence: None)
  Receive Date: 20140424
  Receipt Date: 20140424
  Transmission Date: 20141212
  Serious: No
  Sender: FDA-Public Use
  Company Number: None

PATIENT
  Sex: Male

DRUGS (5)
  1. IMBRUVICA [Suspect]
     Route: 048
     Dates: start: 20140305
  2. BACTRIM DS [Concomitant]
  3. ACYCLOVIR [Concomitant]
  4. LEVOTHYROXINE [Concomitant]
  5. LISINOPRIL [Concomitant]

REACTIONS (5)
  - Hypertension [None]
  - Musculoskeletal pain [None]
  - Pain in extremity [None]
  - Chest pain [None]
  - Arthralgia [None]
